FAERS Safety Report 22337815 (Version 1)
Quarter: 2023Q2

REPORT INFORMATION
  Report Type: Spontaneous
  Country: US (occurrence: None)
  Receive Date: 20230517
  Receipt Date: 20230517
  Transmission Date: 20230721
  Serious: Yes (Hospitalization)
  Sender: FDA-Public Use
  Company Number: None

PATIENT
  Sex: Male

DRUGS (7)
  1. AMBRISENTAN [Suspect]
     Active Substance: AMBRISENTAN
     Indication: Pulmonary arterial hypertension
     Dosage: FREQUENCY : AS DIRECTED;?
     Route: 048
     Dates: start: 20230517
  2. METOPRL SUC TAB [Concomitant]
  3. SPIRONOLACTONE [Concomitant]
     Active Substance: SPIRONOLACTONE
  4. DIGOXIN [Concomitant]
     Active Substance: DIGOXIN
  5. FUROSEMIDE [Concomitant]
     Active Substance: FUROSEMIDE
  6. ENALAPRIL [Concomitant]
     Active Substance: ENALAPRIL
  7. CIPROFLOXACIN [Concomitant]
     Active Substance: CIPROFLOXACIN

REACTIONS (1)
  - Hospitalisation [None]
